FAERS Safety Report 12959538 (Version 2)
Quarter: 2017Q1

REPORT INFORMATION
  Report Type: Spontaneous
  Country: US (occurrence: US)
  Receive Date: 20161121
  Receipt Date: 20170110
  Transmission Date: 20170428
  Serious: No
  Sender: FDA-Public Use
  Company Number: US-009507513-1611USA007522

PATIENT
  Sex: Female

DRUGS (2)
  1. ZETIA [Suspect]
     Active Substance: EZETIMIBE
     Indication: PAIN IN EXTREMITY
  2. ZETIA [Suspect]
     Active Substance: EZETIMIBE
     Indication: MUSCLE SPASMS
     Dosage: UNK
     Route: 048

REACTIONS (7)
  - Drug hypersensitivity [Unknown]
  - Product use issue [Unknown]
  - Muscle spasms [Unknown]
  - Blood pressure increased [Unknown]
  - Muscle atrophy [Recovered/Resolved]
  - Pain in extremity [Recovered/Resolved]
  - Muscle disorder [Recovered/Resolved]
